FAERS Safety Report 5409272-8 (Version None)
Quarter: 2007Q3

REPORT INFORMATION
  Report Type: 
  Country: None (occurrence: None)
  Receive Date: 20070809
  Receipt Date: 20070807
  Transmission Date: 20080115
  Serious: Yes (Life-Threatening, Hospitalization)
  Sender: FDA-Public Use
  Company Number: PHNR2007AU01448

PATIENT
  Age: 13 Year
  Sex: Female

DRUGS (2)
  1. IBUPROFEN TABLETS [Suspect]
     Dosage: 8 TABLETS TOTAL
     Route: 048
     Dates: start: 20051015, end: 20051101
  2. DICLOFENAC SODIUM [Suspect]
     Dosage: 2 TABLETS
     Route: 048
     Dates: start: 20051016, end: 20051017

REACTIONS (12)
  - ARTHRALGIA [None]
  - DIARRHOEA [None]
  - DYSPNOEA [None]
  - FATIGUE [None]
  - GAIT DISTURBANCE [None]
  - HEADACHE [None]
  - MYALGIA [None]
  - NAUSEA [None]
  - PYREXIA [None]
  - URINE ANALYSIS ABNORMAL [None]
  - URTICARIA [None]
  - VISUAL ACUITY REDUCED [None]
